FAERS Safety Report 16075334 (Version 2)
Quarter: 2019Q2

REPORT INFORMATION
  Report Type: Spontaneous
  Country: FR (occurrence: FR)
  Receive Date: 20190315
  Receipt Date: 20190401
  Transmission Date: 20190711
  Serious: Yes (Other)
  Sender: FDA-Public Use
  Company Number: FR-ROCHE-2282095

PATIENT
  Sex: Female

DRUGS (1)
  1. XELODA [Suspect]
     Active Substance: CAPECITABINE
     Indication: PRODUCT USED FOR UNKNOWN INDICATION
     Dosage: 6 TABLETS IN THE MORNING AND 6 TABLETS IN THE EVENING
     Route: 065
     Dates: start: 201902

REACTIONS (5)
  - Burning sensation [Not Recovered/Not Resolved]
  - Onychoclasis [Unknown]
  - Red blood cell count decreased [Unknown]
  - Skin reaction [Not Recovered/Not Resolved]
  - Pruritus [Not Recovered/Not Resolved]
